FAERS Safety Report 9922315 (Version 2)
Quarter: 2014Q1

REPORT INFORMATION
  Report Type: Report from Study
  Country: NZ (occurrence: NZ)
  Receive Date: 20140225
  Receipt Date: 20140312
  Transmission Date: 20141002
  Serious: Yes (Hospitalization)
  Sender: FDA-Public Use
  Company Number: NZ-GLAXOSMITHKLINE-B0972199A

PATIENT
  Sex: Male
  Weight: 79 kg

DRUGS (2)
  1. DABRAFENIB [Suspect]
     Indication: MALIGNANT MELANOMA
     Route: 065
  2. TRAMETINIB [Suspect]
     Indication: MALIGNANT MELANOMA
     Route: 065

REACTIONS (5)
  - Pruritus [Recovered/Resolved]
  - General physical health deterioration [Recovering/Resolving]
  - Chills [Recovered/Resolved]
  - Pyrexia [Recovering/Resolving]
  - Hypotension [Recovered/Resolved]
